FAERS Safety Report 12140745 (Version 1)
Quarter: 2016Q1

REPORT INFORMATION
  Report Type: Spontaneous
  Country: US (occurrence: US)
  Receive Date: 20160303
  Receipt Date: 20160303
  Transmission Date: 20160526
  Serious: No
  Sender: FDA-Public Use
  Company Number: US-PERRIGO-15US004372

PATIENT
  Sex: Male

DRUGS (1)
  1. KETOCONAZOLE RX 2% 4L9 [Suspect]
     Active Substance: KETOCONAZOLE
     Indication: SEBORRHOEA
     Dosage: ONE APPLICATION, BID
     Route: 061
     Dates: start: 20150409

REACTIONS (1)
  - Drug ineffective for unapproved indication [Unknown]

NARRATIVE: CASE EVENT DATE: 20150409
